FAERS Safety Report 18001998 (Version 1)
Quarter: 2020Q3

REPORT INFORMATION
  Report Type: Spontaneous
  Country: CA (occurrence: CA)
  Receive Date: 20200709
  Receipt Date: 20200709
  Transmission Date: 20201103
  Serious: Yes (Life-Threatening)
  Sender: FDA-Public Use
  Company Number: CA-TEVA-2020-CA-1797738

PATIENT
  Age: 9 Year
  Sex: Male
  Weight: 24 kg

DRUGS (53)
  1. CHLORHEXIDINE [Concomitant]
     Active Substance: CHLORHEXIDINE
  2. MESNA. [Concomitant]
     Active Substance: MESNA
  3. TOBRAMYCIN. [Concomitant]
     Active Substance: TOBRAMYCIN
  4. VISTIDE [Concomitant]
     Active Substance: CIDOFOVIR
  5. CYCLOPHOSPHAMIDE. [Suspect]
     Active Substance: CYCLOPHOSPHAMIDE
     Route: 042
  6. HYDROCORTISONE. [Suspect]
     Active Substance: HYDROCORTISONE
     Route: 037
  7. CLOTRIMAZOLE. [Concomitant]
     Active Substance: CLOTRIMAZOLE
  8. LIDOCAINE. [Concomitant]
     Active Substance: LIDOCAINE
  9. SIROLIMUS. [Concomitant]
     Active Substance: SIROLIMUS
  10. LORAZEPAM. [Concomitant]
     Active Substance: LORAZEPAM
  11. METHYLPREDNISOLONE NOS [Concomitant]
     Active Substance: METHYLPREDNISOLONE
  12. RANITIDINE. [Concomitant]
     Active Substance: RANITIDINE
  13. SULFAMETHOXAZOLE AND TRIMETHOPRIM [Concomitant]
     Active Substance: SULFAMETHOXAZOLE\TRIMETHOPRIM
  14. METHOTREXATE. [Suspect]
     Active Substance: METHOTREXATE
     Route: 037
  15. BUSULFAN. [Suspect]
     Active Substance: BUSULFAN
     Indication: HAEMOPHAGOCYTIC LYMPHOHISTIOCYTOSIS
     Route: 042
  16. CYTARABINE INJECTION [Suspect]
     Active Substance: CYTARABINE
     Route: 037
  17. HYDROCORTISONE. [Suspect]
     Active Substance: HYDROCORTISONE
     Route: 037
  18. CHOLECALCIFEROL [Concomitant]
     Active Substance: CHOLECALCIFEROL
  19. DEXAMETHASONE. [Concomitant]
     Active Substance: DEXAMETHASONE
  20. DIVALPROEX SODIUM. [Concomitant]
     Active Substance: DIVALPROEX SODIUM
  21. MORPHINE SULFATE INJ USP [Concomitant]
     Active Substance: MORPHINE SULFATE
  22. POLYETHYLENE GLYCOL [Concomitant]
     Active Substance: POLYETHYLENE GLYCOLS
  23. PREDNISONE. [Concomitant]
     Active Substance: PREDNISONE
  24. ACETAMINOPHEN. [Concomitant]
     Active Substance: ACETAMINOPHEN
  25. DIPHENHYDRAMINE. [Concomitant]
     Active Substance: DIPHENHYDRAMINE
  26. FUROSEMIDE. [Concomitant]
     Active Substance: FUROSEMIDE
  27. HEPARIN CALCIUM [Concomitant]
     Active Substance: HEPARIN CALCIUM
  28. NIFEDIPINE. [Concomitant]
     Active Substance: NIFEDIPINE
  29. METHOTREXATE. [Suspect]
     Active Substance: METHOTREXATE
     Indication: HAEMOPHAGOCYTIC LYMPHOHISTIOCYTOSIS
     Route: 037
  30. ALEMTUZUMAB [Suspect]
     Active Substance: ALEMTUZUMAB
     Route: 042
  31. AMOXICILLIN. [Concomitant]
     Active Substance: AMOXICILLIN
  32. CEFTAZIDIME. [Concomitant]
     Active Substance: CEFTAZIDIME
  33. FILGRASTIM [Concomitant]
     Active Substance: FILGRASTIM
  34. GANCICLOVIR. [Concomitant]
     Active Substance: GANCICLOVIR
  35. LORATADINE. [Concomitant]
     Active Substance: LORATADINE
  36. OXYBUTYNINE?5?TAB 5MG [Concomitant]
  37. VALPROIC ACID. [Concomitant]
     Active Substance: VALPROIC ACID
  38. FOSCAVIR [Suspect]
     Active Substance: FOSCARNET SODIUM
  39. ALTEPLASE. [Concomitant]
     Active Substance: ALTEPLASE
  40. FAMCICLOVIR. [Concomitant]
     Active Substance: FAMCICLOVIR
  41. FLUCONAZOLE. [Concomitant]
     Active Substance: FLUCONAZOLE
  42. ONDANSETRON [Concomitant]
     Active Substance: ONDANSETRON
  43. FLUDARABINE [Suspect]
     Active Substance: FLUDARABINE PHOSPHATE
     Indication: HAEMOPHAGOCYTIC LYMPHOHISTIOCYTOSIS
     Route: 042
  44. ALEMTUZUMAB [Suspect]
     Active Substance: ALEMTUZUMAB
     Route: 042
  45. ALEMTUZUMAB [Suspect]
     Active Substance: ALEMTUZUMAB
     Route: 042
  46. CEPHALEXIN. [Concomitant]
     Active Substance: CEPHALEXIN
  47. EPINEPHRINE. [Concomitant]
     Active Substance: EPINEPHRINE
  48. LANSOPRAZOLE. [Concomitant]
     Active Substance: LANSOPRAZOLE
  49. PHOSPHATE [Concomitant]
     Active Substance: UNSPECIFIED INGREDIENT
  50. PROBENECID. [Concomitant]
     Active Substance: PROBENECID
  51. ALEMTUZUMAB [Suspect]
     Active Substance: ALEMTUZUMAB
     Indication: HAEMOPHAGOCYTIC LYMPHOHISTIOCYTOSIS
     Route: 042
  52. ALEMTUZUMAB [Suspect]
     Active Substance: ALEMTUZUMAB
     Route: 042
  53. ALEMTUZUMAB [Suspect]
     Active Substance: ALEMTUZUMAB
     Route: 042

REACTIONS (7)
  - Epistaxis [Unknown]
  - Platelet transfusion [Unknown]
  - Lip haemorrhage [Unknown]
  - Respiratory distress [Unknown]
  - Stomatitis [Unknown]
  - Aplastic anaemia [Unknown]
  - Adenovirus infection [Unknown]
